FAERS Safety Report 5178585-X (Version None)
Quarter: 2006Q4

REPORT INFORMATION
  Report Type: 
  Country: None (occurrence: None)
  Receive Date: 20061218
  Receipt Date: 20061208
  Transmission Date: 20070319
  Serious: Yes (Hospitalization)
  Sender: FDA-Public Use
  Company Number: PL-ABBOTT-06P-129-0352819-00

PATIENT
  Age: 26 Year
  Sex: Male

DRUGS (1)
  1. DEPAKENE [Suspect]
     Indication: EPILEPSY
     Route: 048
     Dates: start: 20060201, end: 20061026

REACTIONS (4)
  - DEEP VEIN THROMBOSIS [None]
  - EPILEPSY [None]
  - HEPATOCELLULAR DAMAGE [None]
  - PULMONARY EMBOLISM [None]
